FAERS Safety Report 16709008 (Version 3)
Quarter: 2020Q1

REPORT INFORMATION
  Report Type: Spontaneous
  Country: FR (occurrence: FR)
  Receive Date: 20190816
  Receipt Date: 20200109
  Transmission Date: 20200409
  Serious: Yes (Other)
  Sender: FDA-Public Use
  Company Number: FR-TEVA-2019-FR-1092622

PATIENT
  Age: 33 Year
  Sex: Female

DRUGS (3)
  1. AUBAGIO [Concomitant]
     Active Substance: TERIFLUNOMIDE
     Indication: MULTIPLE SCLEROSIS
     Dosage: 14 MILLIGRAM, 1 DAY
     Route: 048
     Dates: start: 2015, end: 20190130
  2. KETOPROFENE [Suspect]
     Active Substance: KETOPROFEN
     Indication: BACK PAIN
     Dosage: INTERMITTENT
     Route: 048
     Dates: start: 201908, end: 201908
  3. KETOPROFENE [Suspect]
     Active Substance: KETOPROFEN
     Indication: GASTRITIS
     Route: 048
     Dates: start: 201906, end: 201906

REACTIONS (1)
  - Hepatocellular injury [Not Recovered/Not Resolved]

NARRATIVE: CASE EVENT DATE: 201812
